FAERS Safety Report 5391448-X (Version None)
Quarter: 2007Q3

REPORT INFORMATION
  Report Type: 
  Country: None (occurrence: None)
  Receive Date: 20070719
  Receipt Date: 20070709
  Transmission Date: 20080115
  Serious: Yes (Hospitalization)
  Sender: FDA-Public Use
  Company Number: US-JNJFOC-20070702476

PATIENT
  Sex: Male
  Weight: 61.24 kg

DRUGS (3)
  1. DURAGESIC-100 [Suspect]
     Indication: PAIN
     Route: 062
  2. OXYCODONE HCL [Concomitant]
     Indication: BREAKTHROUGH PAIN
     Dosage: AS NEEDED
     Route: 048
  3. SIMETHICONE [Concomitant]
     Indication: GASTROINTESTINAL DISORDER
     Dosage: AS NEEDED
     Route: 048

REACTIONS (10)
  - DIZZINESS [None]
  - DRUG DOSE OMISSION [None]
  - DRUG WITHDRAWAL SYNDROME [None]
  - FEELING ABNORMAL [None]
  - INSOMNIA [None]
  - MEDICATION ERROR [None]
  - MUSCLE SPASMS [None]
  - NAUSEA [None]
  - OVERDOSE [None]
  - ROAD TRAFFIC ACCIDENT [None]
